FAERS Safety Report 6919696-5 (Version None)
Quarter: 2010Q3

REPORT INFORMATION
  Report Type: 
  Country: None (occurrence: None)
  Receive Date: 20100810
  Receipt Date: 20100810
  Transmission Date: 20110219
  Serious: Yes (Disabling)
  Sender: FDA-Public Use
  Company Number: None

PATIENT
  Sex: Female
  Weight: 63.6 kg

DRUGS (2)
  1. MEPIVACAINE HCL [Suspect]
     Indication: LOCAL ANAESTHESIA
     Dosage: 2-1.7 M
     Dates: start: 20091101
  2. MEPIVACAINE HCL [Suspect]
     Indication: TOOTH EXTRACTION
     Dosage: 2-1.7 M
     Dates: start: 20091101

REACTIONS (5)
  - ACTIVITIES OF DAILY LIVING IMPAIRED [None]
  - BEDRIDDEN [None]
  - DEMENTIA ALZHEIMER'S TYPE [None]
  - MEMORY IMPAIRMENT [None]
  - THINKING ABNORMAL [None]
